FAERS Safety Report 4339752-8 (Version None)
Quarter: 2004Q2

REPORT INFORMATION
  Report Type: 
  Country: None (occurrence: None)
  Receive Date: 20040415
  Receipt Date: 20040415
  Transmission Date: 20050107
  Serious: Yes (Death)
  Sender: FDA-Public Use
  Company Number: None

PATIENT
  Sex: Female
  Weight: 76.3 kg

DRUGS (1)
  1. CAPECITABINE 150 MG AND 500 MG ROCHE [Suspect]
     Indication: COLORECTAL CANCER METASTATIC
     Dosage: 1,650 MG BID X 14 D ORAL
     Route: 048
     Dates: start: 20040322, end: 20040403

REACTIONS (2)
  - COLORECTAL CANCER METASTATIC [None]
  - MALIGNANT NEOPLASM PROGRESSION [None]
